FAERS Safety Report 22027794 (Version 1)
Quarter: 2023Q1

REPORT INFORMATION
  Report Type: Spontaneous
  Country: FR (occurrence: FR)
  Receive Date: 20230223
  Receipt Date: 20230223
  Transmission Date: 20230418
  Serious: Yes (Other)
  Sender: FDA-Public Use
  Company Number: FR-SA-2023SA060876

PATIENT
  Age: 83 Year
  Sex: Male

DRUGS (4)
  1. OXALIPLATIN [Suspect]
     Active Substance: OXALIPLATIN
     Indication: High-grade B-cell lymphoma
     Dosage: UNK
  2. GEMCITABINE [Suspect]
     Active Substance: GEMCITABINE
     Indication: High-grade B-cell lymphoma
     Dosage: UNK
  3. TAFASITAMAB [Suspect]
     Active Substance: TAFASITAMAB
     Indication: High-grade B-cell lymphoma
     Dosage: 10 MG, QD
  4. LENALIDOMIDE [Suspect]
     Active Substance: LENALIDOMIDE
     Indication: High-grade B-cell lymphoma
     Dosage: 10 MG, QD

REACTIONS (5)
  - High-grade B-cell lymphoma [Unknown]
  - Disease progression [Unknown]
  - Lymphadenopathy [Unknown]
  - Testicular disorder [Unknown]
  - Off label use [Unknown]
